FAERS Safety Report 8989902 (Version 1)
Quarter: 2012Q4

REPORT INFORMATION
  Report Type: Report from Study
  Country: TH (occurrence: TH)
  Receive Date: 20121228
  Receipt Date: 20121228
  Transmission Date: 20130627
  Serious: Yes (Hospitalization)
  Sender: FDA-Public Use
  Company Number: TH-GILEAD-2012-0066893

PATIENT
  Age: 31 Year
  Sex: Female

DRUGS (2)
  1. EMTRICITABINE/TENOFOVIR DISOPROXIL FUMARATE [Suspect]
     Indication: HIV INFECTION
     Dosage: 1 DF, QD
     Route: 048
     Dates: start: 20101202
  2. EFAVIRENZ [Suspect]
     Indication: HIV INFECTION
     Dosage: 600 mg, QD
     Route: 048
     Dates: start: 20101202

REACTIONS (1)
  - Anaemia [Recovered/Resolved]
